FAERS Safety Report 9402837 (Version 2)
Quarter: 2013Q3

REPORT INFORMATION
  Report Type: Spontaneous
  Country: IT (occurrence: IT)
  Receive Date: 20130716
  Receipt Date: 20130927
  Transmission Date: 20140515
  Serious: Yes (Other)
  Sender: FDA-Public Use
  Company Number: IT-TEVA-417590ISR

PATIENT
  Age: 36 Year
  Sex: Female

DRUGS (4)
  1. PENICILLINA G [Suspect]
     Indication: PYREXIA
     Dosage: 2000000 IU (INTERNATIONAL UNIT) DAILY; POWDER AND SOLVENT FOR SOLUTION FOR INTRAVENOUS INFUSION
     Route: 042
     Dates: start: 20130612, end: 20130613
  2. LEVOFLOXACIN [Suspect]
     Indication: PYREXIA
     Dosage: 500 MILLIGRAM DAILY;
     Dates: start: 20130612, end: 20130613
  3. URBASON SOLUBILE 40MG/ML [Concomitant]
     Indication: SYSTEMIC LUPUS ERYTHEMATOSUS
     Dosage: POWDER AND SOLVENT FOR INJECTABLE SOLUTION
  4. FLUCONAZOLO [Concomitant]
     Indication: FUNGAL SKIN INFECTION
     Dates: start: 20130612, end: 20130621

REACTIONS (1)
  - Epilepsy [Recovered/Resolved]
